FAERS Safety Report 12309002 (Version 3)
Quarter: 2017Q1

REPORT INFORMATION
  Report Type: Report from Study
  Country: DE (occurrence: DE)
  Receive Date: 20160427
  Receipt Date: 20170331
  Transmission Date: 20170428
  Serious: Yes (Death, Other)
  Sender: FDA-Public Use
  Company Number: DE-AMGEN-DEUCT2016052751

PATIENT
  Age: 68 Year
  Sex: Male
  Weight: 94.9 kg

DRUGS (3)
  1. CARFILZOMIB [Suspect]
     Active Substance: CARFILZOMIB
     Indication: PLASMA CELL MYELOMA
     Dosage: 20 MCG/M2, PER CHEMO REGIM
     Route: 042
     Dates: start: 20160125, end: 20160420
  2. BENDAMUSTINE [Concomitant]
     Active Substance: BENDAMUSTINE
     Indication: PLASMA CELL MYELOMA
     Dosage: 50 MCG/M2, PER CHEMO REGIM
     Route: 042
     Dates: start: 20160125, end: 20160418
  3. DEXAMETHASONE. [Concomitant]
     Active Substance: DEXAMETHASONE
     Dosage: UNK MG, PER CHEMO REGIM
     Route: 048
     Dates: start: 20160125, end: 20160329

REACTIONS (1)
  - Death [Fatal]

NARRATIVE: CASE EVENT DATE: 20160421
